FAERS Safety Report 7710642-3 (Version None)
Quarter: 2011Q3

REPORT INFORMATION
  Report Type: 
  Country: None (occurrence: None)
  Receive Date: 20110825
  Receipt Date: 20110822
  Transmission Date: 20111222
  Serious: Yes (Other)
  Sender: FDA-Public Use
  Company Number: US-PFIZER INC-2011194558

PATIENT
  Sex: Male
  Weight: 72.562 kg

DRUGS (5)
  1. VENLAFAXINE HYDROCHLORIDE [Suspect]
     Dosage: 300 MG, 1X/DAY
     Dates: start: 20110804
  2. VENLAFAXINE HYDROCHLORIDE [Suspect]
     Indication: DEPRESSION
     Dosage: 300 MG, 1X/DAY
     Dates: start: 20101101, end: 20110101
  3. EFFEXOR XR [Suspect]
     Dosage: 300 MG, 1X/DAY
     Route: 048
     Dates: start: 20110701, end: 20110715
  4. VENLAFAXINE [Suspect]
     Dosage: 300 MG, 1X/DAY
     Dates: start: 20110716, end: 20110101
  5. EFFEXOR XR [Suspect]
     Indication: DEPRESSION
     Dosage: 300 MG, 1X/DAY
     Route: 048
     Dates: start: 20090501, end: 20101101

REACTIONS (2)
  - DEPRESSION [None]
  - HYPERTENSION [None]
